FAERS Safety Report 8494501-7 (Version None)
Quarter: 2012Q3

REPORT INFORMATION
  Report Type: 
  Country: None (occurrence: None)
  Receive Date: 20120709
  Receipt Date: 20110705
  Transmission Date: 20120928
  Serious: No
  Sender: FDA-Public Use
  Company Number: US-COVIDIEN/TYCO HEALTHCARE/MALLINCKRODT-T201101342

PATIENT
  Sex: Female
  Weight: 58.957 kg

DRUGS (2)
  1. RANITIDINE [Concomitant]
     Indication: GASTROOESOPHAGEAL REFLUX DISEASE
     Dosage: 300 MG, BID
     Dates: start: 20070101
  2. OXYCODONE/ACETAMINOPHEN [Suspect]
     Indication: FIBROMYALGIA
     Dosage: 2 TABS Q 4 HOURS, UP TO 8 TABS QD
     Dates: start: 20110630

REACTIONS (4)
  - HEADACHE [None]
  - FEELING ABNORMAL [None]
  - GAIT DISTURBANCE [None]
  - DRUG INEFFECTIVE [None]
